FAERS Safety Report 12700290 (Version 1)
Quarter: 2016Q3

REPORT INFORMATION
  Report Type: Spontaneous
  Country: US (occurrence: US)
  Receive Date: 20160830
  Receipt Date: 20160830
  Transmission Date: 20161109
  Serious: No
  Sender: FDA-Public Use
  Company Number: US-SA-2015SA138920

PATIENT
  Age: 33 Year
  Sex: Male
  Weight: 79.37 kg

DRUGS (9)
  1. FABRAZYME [Suspect]
     Active Substance: AGALSIDASE BETA
     Indication: LIPIDOSIS
     Route: 041
     Dates: start: 20031112
  2. TYLENOL [Concomitant]
     Active Substance: ACETAMINOPHEN
     Dosage: ONE 500 MG TABLET AS NEEDED
     Dates: start: 20111115
  3. NORMAL SALINE [Concomitant]
     Active Substance: SODIUM CHLORIDE
     Dosage: AS DIRECTED
     Route: 042
     Dates: start: 20150528
  4. ALEVE [Concomitant]
     Active Substance: NAPROXEN SODIUM
     Dosage: AS DIRECTED
     Dates: start: 20141029
  5. FABRAZYME [Suspect]
     Active Substance: AGALSIDASE BETA
     Indication: LIPIDOSIS
     Route: 041
     Dates: start: 20031112
  6. SODIUM CHLORIDE. [Concomitant]
     Active Substance: SODIUM CHLORIDE
     Indication: FLUSHING
     Dosage: AS DIRECTED
     Route: 042
     Dates: start: 20150528
  7. WATER FOR INJECTION [Concomitant]
     Active Substance: WATER
     Dosage: AS DIRECTED
     Dates: start: 20150528
  8. EPIPEN [Concomitant]
     Active Substance: EPINEPHRINE
     Indication: ANAPHYLACTIC REACTION
     Dosage: AS NEEDED
     Dates: start: 20150528
  9. BENADRYL [Concomitant]
     Active Substance: DIPHENHYDRAMINE HYDROCHLORIDE
     Dosage: BY MOUTH AS NEEDED
     Route: 048
     Dates: start: 20111115

REACTIONS (3)
  - Chills [Recovered/Resolved]
  - Heart rate increased [Unknown]
  - Cough [Recovered/Resolved]
